FAERS Safety Report 11167735 (Version 1)
Quarter: 2015Q2

REPORT INFORMATION
  Report Type: Spontaneous
  Country: FR (occurrence: FR)
  Receive Date: 20150605
  Receipt Date: 20150605
  Transmission Date: 20150821
  Serious: Yes (Hospitalization)
  Sender: FDA-Public Use
  Company Number: FR-MERCK-1506FRA002228

PATIENT
  Age: 69 Year
  Sex: Male

DRUGS (11)
  1. DIAMICRON [Suspect]
     Active Substance: GLICLAZIDE
     Dosage: 1 DF, QD
     Route: 048
     Dates: end: 20150323
  2. TRIATEC (RAMIPRIL) [Suspect]
     Active Substance: RAMIPRIL
  3. JANUVIA [Suspect]
     Active Substance: SITAGLIPTIN PHOSPHATE
     Dosage: 1 DF, QD
     Route: 048
     Dates: end: 20150323
  4. ROVAMYCINE [Suspect]
     Active Substance: SPIRAMYCIN
     Dosage: 1 DF, SINGLE DOSE
     Route: 048
     Dates: start: 20150320, end: 20150320
  5. TICLID [Suspect]
     Active Substance: TICLOPIDINE HYDROCHLORIDE
     Dosage: UNK
     Route: 048
     Dates: start: 20150121, end: 20150320
  6. OFLOCET (OFLOXACIN HYDROCHLORIDE) [Suspect]
     Active Substance: OFLOXACIN
     Dosage: 1 DF, SINGLE DOSE
     Route: 042
     Dates: start: 20150320, end: 20150320
  7. ROCEPHIN [Suspect]
     Active Substance: CEFTRIAXONE SODIUM
     Dosage: 1 DF, QD
     Route: 042
     Dates: start: 20150318, end: 20150320
  8. KARDEGIC [Suspect]
     Active Substance: ASPIRIN LYSINE
     Dosage: 1 DF, QD
     Route: 048
  9. PLAVIX [Suspect]
     Active Substance: CLOPIDOGREL BISULFATE
     Dosage: 1 DF, QD
     Route: 048
     Dates: start: 20150320
  10. SOTALEX [Suspect]
     Active Substance: SOTALOL
     Dosage: UNK
  11. AUGMENTIN [Suspect]
     Active Substance: AMOXICILLIN\CLAVULANATE POTASSIUM
     Dosage: 1 G, TID
     Route: 042
     Dates: start: 20150320, end: 20150323

REACTIONS (2)
  - Cholestasis [Unknown]
  - Hepatocellular injury [Unknown]

NARRATIVE: CASE EVENT DATE: 20150320
